FAERS Safety Report 8120485-7 (Version None)
Quarter: 2012Q1

REPORT INFORMATION
  Report Type: 
  Country: None (occurrence: None)
  Receive Date: 20120207
  Receipt Date: 20120130
  Transmission Date: 20120608
  Serious: Yes (Hospitalization)
  Sender: FDA-Public Use
  Company Number: US-GILEAD-2011-0045416

PATIENT
  Sex: Female

DRUGS (11)
  1. RANEXA [Suspect]
     Indication: CARDIAC FAILURE CONGESTIVE
     Dosage: 1000 MG, BID
     Route: 048
     Dates: start: 20110916, end: 20111001
  2. PROTONIX [Concomitant]
  3. ASPIRIN [Concomitant]
  4. COLACE [Concomitant]
  5. PLAVIX [Concomitant]
  6. CRESTOR [Concomitant]
  7. CELEXA [Suspect]
     Indication: PRODUCT USED FOR UNKNOWN INDICATION
     Dosage: 20 MG, UNK
  8. CLONAZEPAM [Concomitant]
  9. RANEXA [Suspect]
     Indication: ANGINA PECTORIS
  10. LOSARTAN POTASSIUM [Concomitant]
  11. RANEXA [Suspect]
     Indication: PULMONARY HYPERTENSION
     Dosage: 500 MG, BID
     Route: 048

REACTIONS (4)
  - TORSADE DE POINTES [None]
  - SYNCOPE [None]
  - BRADYCARDIA [None]
  - ELECTROCARDIOGRAM QT PROLONGED [None]
